FAERS Safety Report 20039498 (Version 2)
Quarter: 2021Q4

REPORT INFORMATION
  Report Type: Report from Study
  Country: IE (occurrence: IE)
  Receive Date: 20211105
  Receipt Date: 20211231
  Transmission Date: 20220303
  Serious: Yes (Hospitalization)
  Sender: FDA-Public Use
  Company Number: IE-AstraZeneca-2021A783095

PATIENT
  Sex: Female

DRUGS (12)
  1. SYNAGIS [Suspect]
     Active Substance: PALIVIZUMAB
     Indication: Bronchopulmonary dysplasia
     Dosage: 15 MG/KG AFTER 28 DAYS
     Route: 030
     Dates: start: 20210930, end: 2021
  2. SYNAGIS [Suspect]
     Active Substance: PALIVIZUMAB
     Indication: Bronchopulmonary dysplasia
     Dosage: 15 MG/KG AFTER 28 DAYS
     Route: 030
     Dates: start: 20211028, end: 2021
  3. SYNAGIS [Suspect]
     Active Substance: PALIVIZUMAB
     Dosage: 15 MG/KG AFTER 28 DAYS
     Route: 030
     Dates: start: 20211125
  4. SPIRONOLACTONE [Concomitant]
     Active Substance: SPIRONOLACTONE
     Indication: Product used for unknown indication
     Dosage: 4.3 MG OD
  5. FUROSEMIDE [Concomitant]
     Active Substance: FUROSEMIDE
     Indication: Product used for unknown indication
     Dosage: 4.3 MG BD
  6. BOSENTAN [Concomitant]
     Active Substance: BOSENTAN
     Indication: Product used for unknown indication
     Dosage: 15 MG BD
  7. SILDENAFIL [Concomitant]
     Active Substance: SILDENAFIL
     Indication: Product used for unknown indication
     Dosage: 10 MG TDS
  8. AZITHROMYCIN [Concomitant]
     Active Substance: AZITHROMYCIN
     Indication: Product used for unknown indication
  9. OMEPRAZOLE [Concomitant]
     Active Substance: OMEPRAZOLE
     Indication: Product used for unknown indication
  10. IRON [Concomitant]
     Active Substance: IRON
     Indication: Product used for unknown indication
  11. GAVISCON [Concomitant]
     Active Substance: ALUMINUM HYDROXIDE\MAGNESIUM CARBONATE
     Indication: Product used for unknown indication
     Dosage: 1 UNITS PER DOSE
  12. PROPRANOLOL HYDROCHLORIDE [Concomitant]
     Active Substance: PROPRANOLOL HYDROCHLORIDE
     Indication: Product used for unknown indication

REACTIONS (2)
  - Respiratory syncytial virus infection [Recovered/Resolved]
  - Drug ineffective [Unknown]

NARRATIVE: CASE EVENT DATE: 20210101
